FAERS Safety Report 10094810 (Version 1)
Quarter: 2014Q2

REPORT INFORMATION
  Report Type: Spontaneous
  Country: US (occurrence: US)
  Receive Date: 20140422
  Receipt Date: 20140422
  Transmission Date: 20141212
  Serious: No
  Sender: FDA-Public Use
  Company Number: US-PFIZER INC-2014109580

PATIENT
  Sex: Female

DRUGS (1)
  1. XELJANZ [Suspect]
     Dosage: UNK

REACTIONS (7)
  - Nasopharyngitis [Unknown]
  - Asthenia [Unknown]
  - Somnolence [Unknown]
  - Rhinorrhoea [Unknown]
  - Sinusitis [Unknown]
  - Dizziness [Unknown]
  - Nasal congestion [Unknown]
